FAERS Safety Report 25792514 (Version 1)
Quarter: 2025Q3

REPORT INFORMATION
  Report Type: Spontaneous
  Country: JP (occurrence: JP)
  Receive Date: 20250911
  Receipt Date: 20250911
  Transmission Date: 20251020
  Serious: Yes (Other)
  Sender: ALEXION PHARMACEUTICALS
  Company Number: JP-ASTRAZENECA-202509JPN002434JP

PATIENT
  Age: 73 Year
  Sex: Male

DRUGS (1)
  1. ULTOMIRIS [Suspect]
     Active Substance: RAVULIZUMAB-CWVZ
     Indication: Paroxysmal nocturnal haemoglobinuria
     Dosage: 2700 MILLIGRAM, Q2W
     Route: 065
     Dates: start: 20240220, end: 20240625

REACTIONS (4)
  - Breakthrough haemolysis [Unknown]
  - Anaemia [Unknown]
  - Reticulocyte count increased [Unknown]
  - Blood bilirubin unconjugated increased [Unknown]
